FAERS Safety Report 14574017 (Version 1)
Quarter: 2018Q1

REPORT INFORMATION
  Report Type: Report from Study
  Country: GB (occurrence: GB)
  Receive Date: 20180226
  Receipt Date: 20180226
  Transmission Date: 20180509
  Serious: Yes (Death)
  Sender: FDA-Public Use
  Company Number: GB-TEVA-2018-GB-861875

PATIENT
  Age: 45 Year
  Sex: Female

DRUGS (4)
  1. TRAMADOL. [Suspect]
     Active Substance: TRAMADOL
     Route: 065
  2. PREGABALIN. [Suspect]
     Active Substance: PREGABALIN
     Route: 065
  3. MORPHINE [Suspect]
     Active Substance: MORPHINE
     Dosage: ESCALATING DOSE OF ORAL MORPHINE 100ML, FOLLOWED BY 280ML AND 500ML
     Route: 048
  4. MIRTAZAPINE. [Suspect]
     Active Substance: MIRTAZAPINE
     Route: 065

REACTIONS (2)
  - Death [Fatal]
  - Medication error [Unknown]
